FAERS Safety Report 10254783 (Version 1)
Quarter: 2014Q2

REPORT INFORMATION
  Report Type: Spontaneous
  Country: US (occurrence: None)
  Receive Date: 20140620
  Receipt Date: 20140620
  Transmission Date: 20141212
  Serious: No
  Sender: FDA-Public Use
  Company Number: None

PATIENT
  Age: 39 Year
  Sex: Female
  Weight: 113.4 kg

DRUGS (1)
  1. MIRVASO [Suspect]
     Indication: ROSACEA
     Dosage: TOPICALLY APPLIED LOTION, ONCE DAILY, TOPICALLY APPLIED
     Route: 061
     Dates: start: 20140612, end: 20140618

REACTIONS (6)
  - Flushing [None]
  - Burning sensation [None]
  - Application site warmth [None]
  - Pain [None]
  - Erythema [None]
  - Application site urticaria [None]
